FAERS Safety Report 22344147 (Version 1)
Quarter: 2023Q2

REPORT INFORMATION
  Report Type: Spontaneous
  Country: GB (occurrence: GB)
  Receive Date: 20230519
  Receipt Date: 20230519
  Transmission Date: 20230721
  Serious: Yes (Other)
  Sender: FDA-Public Use
  Company Number: GB-MHRA-MED-202305080819450450-YLBVK

PATIENT
  Age: 32 Year
  Sex: Female
  Weight: 59 kg

DRUGS (5)
  1. MONTELUKAST [Suspect]
     Active Substance: MONTELUKAST SODIUM
     Indication: Seasonal allergy
     Dosage: 10 MILLIGRAM, AT BED TIME
     Route: 065
     Dates: start: 20230309, end: 20230413
  2. FEXOFENADINE [Concomitant]
     Active Substance: FEXOFENADINE HYDROCHLORIDE
     Indication: Seasonal allergy
     Dosage: UNK
     Route: 065
  3. FLUOXETINE [Concomitant]
     Active Substance: FLUOXETINE HYDROCHLORIDE
     Indication: Anxiety
     Dosage: UNK
     Route: 065
  4. FOLIC ACID [Concomitant]
     Active Substance: FOLIC ACID
     Indication: Folate deficiency
     Dosage: UNK
     Route: 065
  5. HYDROXOCOBALAMIN [Concomitant]
     Active Substance: HYDROXOCOBALAMIN
     Indication: Vitamin B12 deficiency
     Dosage: UNK
     Route: 065

REACTIONS (1)
  - Anxiety disorder [Not Recovered/Not Resolved]

NARRATIVE: CASE EVENT DATE: 20230413
